FAERS Safety Report 17070070 (Version 1)
Quarter: 2019Q4

REPORT INFORMATION
  Report Type: Spontaneous
  Country: US (occurrence: US)
  Receive Date: 20191125
  Receipt Date: 20191125
  Transmission Date: 20200122
  Serious: Yes (Congenital Anomaly)
  Sender: FDA-Public Use
  Company Number: US-TEVA-2019-US-1142733

PATIENT
  Age: 10 Month
  Sex: Male

DRUGS (2)
  1. TOPOTECAN [Suspect]
     Active Substance: TOPOTECAN HYDROCHLORIDE
     Indication: CONGENITAL RETINOBLASTOMA
     Dosage: 5 SESSIONS WITH DOSE 20MICROG/0.1CC EVERY 26 DAYS
     Route: 050
  2. MELPHALAN. [Suspect]
     Active Substance: MELPHALAN
     Indication: CONGENITAL RETINOBLASTOMA
     Dosage: 5 SESSIONS WITH DOSE 20MICROG/0.1CC EVERY 26 DAYS
     Route: 050

REACTIONS (1)
  - Heterochromia iridis [Not Recovered/Not Resolved]
